FAERS Safety Report 25494796 (Version 3)
Quarter: 2025Q4

REPORT INFORMATION
  Report Type: Spontaneous
  Country: US (occurrence: US)
  Receive Date: 20250630
  Receipt Date: 20251104
  Transmission Date: 20260117
  Serious: Yes (Hospitalization)
  Sender: TRAVERE THERAPEUTICS
  Company Number: US-TRAVERE-2025TVT00845

PATIENT
  Age: 55 Year
  Sex: Female

DRUGS (3)
  1. FILSPARI [Suspect]
     Active Substance: SPARSENTAN
     Indication: Alport^s syndrome
     Route: 048
  2. FILSPARI [Suspect]
     Active Substance: SPARSENTAN
     Indication: Chronic kidney disease
     Route: 048
  3. FILSPARI [Suspect]
     Active Substance: SPARSENTAN
     Indication: Proteinuria

REACTIONS (3)
  - Anaemia [Unknown]
  - Abdominal pain [None]
  - Product use in unapproved indication [Unknown]

NARRATIVE: CASE EVENT DATE: 20250601
